FAERS Safety Report 10166605 (Version 1)
Quarter: 2014Q2

REPORT INFORMATION
  Report Type: Spontaneous
  Country: US (occurrence: None)
  Receive Date: 20140509
  Receipt Date: 20140509
  Transmission Date: 20141212
  Serious: Yes (Disabling)
  Sender: FDA-Public Use
  Company Number: None

PATIENT
  Age: 57 Year
  Sex: Female
  Weight: 53.6 kg

DRUGS (1)
  1. ZOCOR 20 MG, COMPRIM?S PELLICUL?S [Suspect]

REACTIONS (7)
  - Pain [None]
  - Oedema [None]
  - Fatigue [None]
  - Scleroderma [None]
  - Diabetes mellitus [None]
  - Weight decreased [None]
  - Asthenia [None]
